FAERS Safety Report 4989193-5 (Version None)
Quarter: 2006Q2

REPORT INFORMATION
  Report Type: 
  Country: None (occurrence: None)
  Receive Date: 20060425
  Receipt Date: 20060410
  Transmission Date: 20061013
  Serious: Yes (Other)
  Sender: FDA-Public Use
  Company Number: 223411

PATIENT
  Age: 61 Year
  Sex: Female

DRUGS (17)
  1. AVASTIN [Suspect]
     Indication: BREAST CANCER
     Dosage: 400 MG, INTRAVENOUS
     Route: 042
     Dates: start: 20060214, end: 20060328
  2. AREDIA [Concomitant]
  3. FASLODEX [Concomitant]
  4. GEMZAR [Concomitant]
  5. CHEMOTHERAPY (ANTINEOPLASTIC AGENT NOS) [Concomitant]
  6. HUMALOG [Concomitant]
  7. LANTUS [Concomitant]
  8. LISINOPRIL [Concomitant]
  9. WARFARIN SODIUM [Concomitant]
  10. FUROSEMIDE [Concomitant]
  11. SYNTHROID [Concomitant]
  12. TOPROL-XL [Concomitant]
  13. MEGACE [Concomitant]
  14. ARIMIDEX [Concomitant]
  15. SPIRONOLACTONE [Concomitant]
  16. HYDROCODONE (HYDROCODONE BITARTRATE) [Concomitant]
  17. LOTENSIN [Concomitant]

REACTIONS (4)
  - BLOOD GLUCOSE INCREASED [None]
  - CONTUSION [None]
  - HYPOGLYCAEMIA [None]
  - ROAD TRAFFIC ACCIDENT [None]
